FAERS Safety Report 4875579-6 (Version None)
Quarter: 2006Q1

REPORT INFORMATION
  Report Type: 
  Country: None (occurrence: None)
  Receive Date: 20060109
  Receipt Date: 20060104
  Transmission Date: 20060701
  Serious: Yes (Life-Threatening)
  Sender: FDA-Public Use
  Company Number: DE-ROCHE-430777

PATIENT
  Age: 62 Year
  Sex: Female

DRUGS (4)
  1. TRETINOIN [Suspect]
     Indication: ACUTE MYELOID LEUKAEMIA
     Route: 065
     Dates: start: 20051106, end: 20051121
  2. POSACONAZOLE [Suspect]
     Indication: FUNGAL INFECTION
     Route: 048
     Dates: start: 20050702
  3. CYANOCOBALAMIN [Suspect]
     Route: 065
  4. AMPHOTERICIN B [Concomitant]
     Indication: ANTIFUNGAL PROPHYLAXIS
     Dates: start: 20050622

REACTIONS (2)
  - NEUTROPENIA [None]
  - THROMBOCYTOPENIA [None]
